FAERS Safety Report 25133745 (Version 3)
Quarter: 2025Q2

REPORT INFORMATION
  Report Type: Report from Study
  Country: US (occurrence: US)
  Receive Date: 20250328
  Receipt Date: 20250424
  Transmission Date: 20250716
  Serious: Yes (Hospitalization)
  Sender: BOEHRINGER INGELHEIM
  Company Number: US-BoehringerIngelheim-2024-BI-048661

PATIENT
  Age: 77 Year
  Sex: Female

DRUGS (1)
  1. OFEV [Suspect]
     Active Substance: NINTEDANIB
     Indication: Idiopathic pulmonary fibrosis
     Dates: start: 20240801

REACTIONS (17)
  - Dizziness [Recovered/Resolved]
  - Diplopia [Recovered/Resolved]
  - Transient ischaemic attack [Unknown]
  - Gastrointestinal disorder [Recovered/Resolved]
  - Vertigo [Recovered/Resolved]
  - Diarrhoea [Recovered/Resolved]
  - Abdominal pain upper [Recovered/Resolved]
  - Otitis media [Recovered/Resolved]
  - Dizziness [Recovered/Resolved]
  - Nausea [Recovered/Resolved]
  - Asthenia [Unknown]
  - Palpitations [Unknown]
  - Bone pain [Unknown]
  - Headache [Unknown]
  - Arthralgia [Unknown]
  - Extrasystoles [Unknown]
  - Feeling abnormal [Unknown]

NARRATIVE: CASE EVENT DATE: 20240801
